FAERS Safety Report 5940091-X (Version None)
Quarter: 2008Q4

REPORT INFORMATION
  Report Type: 
  Country: None (occurrence: None)
  Receive Date: 20081104
  Receipt Date: 20081028
  Transmission Date: 20090506
  Serious: Yes (Other)
  Sender: FDA-Public Use
  Company Number: PHEH2006US13759

PATIENT
  Sex: Female

DRUGS (6)
  1. ZOMETA [Suspect]
     Indication: METASTASES TO BONE
     Dosage: 4 MG, Q4WEEKS
     Route: 042
     Dates: start: 20040331, end: 20060929
  2. AROMASIN [Concomitant]
  3. VITAMINS [Concomitant]
  4. LIPITOR [Concomitant]
  5. TAXOL [Concomitant]
     Indication: BREAST CANCER
     Dosage: 80 MG/M2, QW
     Dates: start: 20050101, end: 20050401
  6. TAXOTERE [Concomitant]
     Indication: BREAST CANCER
     Dosage: 75 MG/M2, Q 3 WEEKS
     Dates: start: 20050501, end: 20050701

REACTIONS (7)
  - BONE DISORDER [None]
  - DENTAL CARIES [None]
  - GINGIVAL INFECTION [None]
  - GINGIVAL OPERATION [None]
  - GINGIVAL ULCERATION [None]
  - OSTEONECROSIS [None]
  - TOOTH EXTRACTION [None]
